FAERS Safety Report 25937459 (Version 1)
Quarter: 2025Q4

REPORT INFORMATION
  Report Type: Spontaneous
  Country: US (occurrence: US)
  Receive Date: 20251018
  Receipt Date: 20251018
  Transmission Date: 20260118
  Serious: Yes (Hospitalization, Other)
  Sender: ASPIRO PHARMA
  Company Number: US-ASPIRO-ASP2025US06107

PATIENT
  Age: 36 Year

DRUGS (1)
  1. CHLORPROMAZINE [Suspect]
     Active Substance: CHLORPROMAZINE
     Indication: Hiccups
     Dosage: 25 MILLIGRAM
     Route: 065

REACTIONS (4)
  - Akathisia [Unknown]
  - Drug intolerance [Unknown]
  - Mental status changes [Recovered/Resolved]
  - Urinary retention [Unknown]
